FAERS Safety Report 18050131 (Version 7)
Quarter: 2020Q4

REPORT INFORMATION
  Report Type: Report from Study
  Country: TW (occurrence: TW)
  Receive Date: 20200721
  Receipt Date: 20201103
  Transmission Date: 20210113
  Serious: Yes (Life-Threatening, Hospitalization)
  Sender: FDA-Public Use
  Company Number: TW-ROCHE-2643334

PATIENT
  Age: 52 Year
  Sex: Male
  Weight: 81.5 kg

DRUGS (19)
  1. CEFEPIME [Concomitant]
     Active Substance: CEFEPIME HYDROCHLORIDE
     Route: 042
     Dates: start: 20200716, end: 20200720
  2. IBUPROFEN. [Concomitant]
     Active Substance: IBUPROFEN
     Indication: PYREXIA
     Dates: start: 20200711
  3. METHYLPREDNISOLONE. [Concomitant]
     Active Substance: METHYLPREDNISOLONE
     Indication: IMMUNE SYSTEM DISORDER
     Route: 042
     Dates: start: 20200717, end: 20200717
  4. METHYLPREDNISOLONE. [Concomitant]
     Active Substance: METHYLPREDNISOLONE
     Route: 042
     Dates: start: 20200717, end: 20200719
  5. ENTECAVIR. [Concomitant]
     Active Substance: ENTECAVIR
     Indication: CHRONIC HEPATITIS
  6. CEFIXIME. [Concomitant]
     Active Substance: CEFIXIME
     Indication: INFECTION
     Dates: start: 20200711, end: 20200713
  7. CYPROHEPTADINE HCL [Concomitant]
     Active Substance: CYPROHEPTADINE HYDROCHLORIDE
     Indication: PRURITUS
     Dates: start: 20200713
  8. LORAZEPAM. [Concomitant]
     Active Substance: LORAZEPAM
     Indication: INSOMNIA
     Dates: start: 20200716, end: 20200803
  9. ATEZOLIZUMAB. [Suspect]
     Active Substance: ATEZOLIZUMAB
     Indication: HEPATOCELLULAR CARCINOMA
     Dosage: MOST RECENT DOSE OF ATEZOLIZUMAB PRIOR TO AE/SAE ONSET: 01/JUL/2020 (1200 MG)
     Route: 042
     Dates: start: 20200701
  10. ACETAMINOPHEN. [Concomitant]
     Active Substance: ACETAMINOPHEN
     Indication: PYREXIA
     Dates: start: 20200711, end: 20200711
  11. ACETAMINOPHEN. [Concomitant]
     Active Substance: ACETAMINOPHEN
     Dates: start: 20200711
  12. CYPROHEPTADINE HCL [Concomitant]
     Active Substance: CYPROHEPTADINE HYDROCHLORIDE
     Dates: start: 20200719
  13. DEXCHLORPHENIRAMINE MALEATE. [Concomitant]
     Active Substance: DEXCHLORPHENIRAMINE MALEATE
     Indication: PRURITUS
     Dates: start: 20200715
  14. MEFENAMIC ACID. [Concomitant]
     Active Substance: MEFENAMIC ACID
     Indication: PYREXIA
     Dates: start: 20200714, end: 20200714
  15. OSELTAMIVIR [Concomitant]
     Active Substance: OSELTAMIVIR
     Dates: start: 20200716, end: 20200721
  16. ESOMEPRAZOLE. [Concomitant]
     Active Substance: ESOMEPRAZOLE MAGNESIUM
     Indication: GASTRIC ULCER
     Dates: start: 20200719
  17. CEFEPIME [Concomitant]
     Active Substance: CEFEPIME HYDROCHLORIDE
     Indication: SEPSIS
     Dates: start: 20200714, end: 20200714
  18. BEVACIZUMAB. [Suspect]
     Active Substance: BEVACIZUMAB
     Indication: HEPATOCELLULAR CARCINOMA
     Dosage: MOST RECENT DOSE OF BEVACIZUMAB PRIOR TO AE/SAE ONSET: 01/JUL/2020 (1226 MG)
     Route: 042
     Dates: start: 20200701
  19. FLUOCINONIDE. [Concomitant]
     Active Substance: FLUOCINONIDE
     Indication: PRURITUS
     Dosage: 1 OTHER ?10 GM/TUBE
     Route: 061
     Dates: start: 20200715, end: 20200724

REACTIONS (1)
  - Tumour necrosis [Recovered/Resolved]

NARRATIVE: CASE EVENT DATE: 20200714
